FAERS Safety Report 9995335 (Version 1)
Quarter: 2014Q1

REPORT INFORMATION
  Report Type: Spontaneous
  Country: IL (occurrence: IL)
  Receive Date: 20140311
  Receipt Date: 20140311
  Transmission Date: 20141002
  Serious: Yes (Other)
  Sender: FDA-Public Use
  Company Number: IL-VERTEX PHARMACEUTICALS INC-2014-001178

PATIENT
  Age: 40 Year
  Sex: Male
  Weight: 64 kg

DRUGS (1)
  1. INCIVO [Suspect]
     Indication: HEPATITIS C
     Route: 048

REACTIONS (4)
  - White blood cell count decreased [Unknown]
  - Haemorrhage [Unknown]
  - Pyrexia [Unknown]
  - Weight decreased [Unknown]
